FAERS Safety Report 7307213-X (Version None)
Quarter: 2011Q1

REPORT INFORMATION
  Report Type: 
  Country: None (occurrence: None)
  Receive Date: 20110223
  Receipt Date: 20110215
  Transmission Date: 20110831
  Serious: No
  Sender: FDA-Public Use
  Company Number: US-PFIZER INC-2010160791

PATIENT
  Sex: Male
  Weight: 83.9 kg

DRUGS (4)
  1. ULTRAM ER [Suspect]
     Indication: BACK PAIN
     Dosage: 100 MG, 3X/DAY
     Route: 048
  2. ULTRAM ER [Suspect]
     Indication: SPINAL COMPRESSION FRACTURE
  3. CHANTIX [Suspect]
     Indication: SMOKING CESSATION THERAPY
     Dosage: 0.5 MG, 1X/DAY
     Route: 048
     Dates: start: 20101125
  4. ULTRAM ER [Suspect]
     Indication: NERVOUS SYSTEM DISORDER

REACTIONS (2)
  - INSOMNIA [None]
  - CHEST PAIN [None]
